FAERS Safety Report 5787490-7 (Version None)
Quarter: 2008Q2

REPORT INFORMATION
  Report Type: 
  Country: None (occurrence: None)
  Receive Date: 20080623
  Receipt Date: 20080623
  Transmission Date: 20081010
  Serious: No
  Sender: FDA-Public Use
  Company Number: None

PATIENT
  Age: 67 Year
  Sex: Male

DRUGS (2)
  1. ETODOLAC [Suspect]
     Indication: PAIN
     Dosage: 300 MG BID PO
     Route: 048
     Dates: start: 20080530, end: 20080607
  2. KETOROLAC TROMETHAMINE [Suspect]
     Dosage: 30 MG OTHER PO
     Route: 048

REACTIONS (1)
  - OEDEMA PERIPHERAL [None]
